FAERS Safety Report 7112244-9 (Version None)
Quarter: 2010Q4

REPORT INFORMATION
  Report Type: 
  Country: None (occurrence: None)
  Receive Date: 20101119
  Receipt Date: 20100423
  Transmission Date: 20110411
  Serious: No
  Sender: FDA-Public Use
  Company Number: A0856477A

PATIENT
  Age: 68 Year
  Sex: Male

DRUGS (13)
  1. AVODART [Suspect]
     Indication: BENIGN PROSTATIC HYPERPLASIA
     Dosage: .5MG PER DAY
     Route: 048
     Dates: start: 20050101
  2. MULTI-VITAMIN [Concomitant]
  3. VITAMIN E [Concomitant]
  4. PYRIDOXINE HCL [Concomitant]
  5. VITAMIN B-12 [Concomitant]
  6. GLUCOSAMINE [Concomitant]
  7. ASCORBIC ACID [Concomitant]
  8. BABY OIL [Concomitant]
  9. FISH OIL [Concomitant]
  10. GROUND FLAX SEED [Concomitant]
  11. MELATONIN [Concomitant]
  12. CALCIUM [Concomitant]
  13. VIAGRA [Concomitant]

REACTIONS (1)
  - EJACULATION FAILURE [None]
